FAERS Safety Report 23606576 (Version 1)
Quarter: 2024Q1

REPORT INFORMATION
  Report Type: Report from Study
  Country: PE (occurrence: None)
  Receive Date: 20240307
  Receipt Date: 20240307
  Transmission Date: 20240410
  Serious: Yes (Other)
  Sender: FDA-Public Use
  Company Number: 2024A052332

PATIENT
  Sex: Female

DRUGS (1)
  1. LYNPARZA [Suspect]
     Active Substance: OLAPARIB
     Indication: Ovarian cancer
     Route: 048
     Dates: start: 202308

REACTIONS (3)
  - Oropharyngeal plaque [Unknown]
  - Cholelithiasis [Not Recovered/Not Resolved]
  - Anxiety [Not Recovered/Not Resolved]
